FAERS Safety Report 6250613-X (Version None)
Quarter: 2009Q2

REPORT INFORMATION
  Report Type: 
  Country: None (occurrence: None)
  Receive Date: 20090626
  Receipt Date: 20090611
  Transmission Date: 20091009
  Serious: Yes (Life-Threatening, Other)
  Sender: FDA-Public Use
  Company Number: DSJ-2009-06510

PATIENT
  Age: 89 Year
  Sex: Female
  Weight: 50 kg

DRUGS (1)
  1. OLMESARTAN MEDOXOMIL [Suspect]
     Indication: HYPERTENSION
     Dosage: 20 MG (20 MG, 1 IN 1 D), PER ORAL
     Route: 048

REACTIONS (7)
  - BRADYARRHYTHMIA [None]
  - DEHYDRATION [None]
  - EATING DISORDER [None]
  - HAEMODIALYSIS [None]
  - HYPERKALAEMIA [None]
  - NASOPHARYNGITIS [None]
  - RENAL FAILURE ACUTE [None]
